FAERS Safety Report 8153582-0 (Version None)
Quarter: 2012Q1

REPORT INFORMATION
  Report Type: 
  Country: None (occurrence: None)
  Receive Date: 20120201
  Receipt Date: 20120201
  Transmission Date: 20120608
  Serious: No
  Sender: FDA-Public Use
  Company Number: None

PATIENT
  Weight: 20.8 kg

DRUGS (1)
  1. CONCERTA [Suspect]
     Indication: ATTENTION DEFICIT/HYPERACTIVITY DISORDER
     Dosage: FOR AT LEAST SEVERAL MONTHS

REACTIONS (4)
  - OBSTRUCTION GASTRIC [None]
  - VOMITING [None]
  - GASTRIC VOLVULUS [None]
  - ABDOMINAL DISTENSION [None]
